FAERS Safety Report 23732863 (Version 1)
Quarter: 2024Q2

REPORT INFORMATION
  Report Type: Spontaneous
  Country: US (occurrence: None)
  Receive Date: 20240411
  Receipt Date: 20240411
  Transmission Date: 20240716
  Serious: No
  Sender: FDA-Public Use
  Company Number: None

PATIENT
  Age: 74 Year
  Sex: Female

DRUGS (2)
  1. ENTECAVIR [Suspect]
     Active Substance: ENTECAVIR
     Indication: Hepatitis viral
     Dosage: FREQUENCY : DAILY;?
     Route: 048
     Dates: start: 202403
  2. ENTECAVIR [Suspect]
     Active Substance: ENTECAVIR
     Indication: Hepatitis B

REACTIONS (2)
  - Pyrexia [None]
  - Infection [None]

NARRATIVE: CASE EVENT DATE: 20240408
